FAERS Safety Report 23705039 (Version 1)
Quarter: 2024Q2

REPORT INFORMATION
  Report Type: Spontaneous
  Country: GB (occurrence: GB)
  Receive Date: 20240404
  Receipt Date: 20240404
  Transmission Date: 20240716
  Serious: Yes (Other)
  Sender: FDA-Public Use
  Company Number: None

PATIENT
  Age: 66 Year
  Sex: Male
  Weight: 118 kg

DRUGS (6)
  1. AMLODIPINE [Suspect]
     Active Substance: AMLODIPINE BESYLATE
     Indication: Hypertension
     Route: 065
     Dates: start: 20231217, end: 20240321
  2. DOXAZOSIN [Concomitant]
     Active Substance: DOXAZOSIN MESYLATE
     Dosage: AT NIGHT,
     Dates: start: 20170831
  3. ACETAMINOPHEN [Concomitant]
     Active Substance: ACETAMINOPHEN
     Dosage: TIME INTERVAL: AS NECESSARY: UP TO FOUR TIMES A DAY AS NEEDED
     Dates: start: 20211129
  4. LOSARTAN [Concomitant]
     Active Substance: LOSARTAN
     Dates: start: 20181025
  5. FUCIDIN [Concomitant]
     Active Substance: FUSIDATE SODIUM
     Dosage: APPLY TO AFFECTED AREA,
     Dates: start: 20240216, end: 20240223
  6. METFORMIN HYDROCHLORIDE [Concomitant]
     Active Substance: METFORMIN HYDROCHLORIDE
     Dates: start: 20171018

REACTIONS (1)
  - Orthostatic hypotension [Recovered/Resolved]

NARRATIVE: CASE EVENT DATE: 20240322
